FAERS Safety Report 22232309 (Version 1)
Quarter: 2023Q2

REPORT INFORMATION
  Report Type: Spontaneous
  Country: US (occurrence: None)
  Receive Date: 20230420
  Receipt Date: 20230420
  Transmission Date: 20230721
  Serious: No
  Sender: FDA-Public Use
  Company Number: US-ROCHE-3068581

PATIENT
  Sex: Male

DRUGS (1)
  1. ESBRIET [Suspect]
     Active Substance: PIRFENIDONE
     Indication: Product used for unknown indication
     Dosage: 3 TABLETS OF 267 MG ESBRIET 3 TIMES A DAY WITH FOOD
     Route: 048

REACTIONS (3)
  - Respiratory disorder [Unknown]
  - Fatigue [Unknown]
  - Decreased appetite [Unknown]
